FAERS Safety Report 7377865-7 (Version None)
Quarter: 2011Q1

REPORT INFORMATION
  Report Type: 
  Country: None (occurrence: None)
  Receive Date: 20110328
  Receipt Date: 20110314
  Transmission Date: 20110831
  Serious: Yes (Death, Other)
  Sender: FDA-Public Use
  Company Number: FR-CELGENEUS-056-21880-11031702

PATIENT

DRUGS (4)
  1. REVLIMID [Suspect]
     Indication: MULTIPLE MYELOMA
     Route: 048
  2. CYCLOSPORINE [Concomitant]
     Indication: TRANSPLANT
     Route: 065
  3. MYCOPHENOLATE MEFETIL [Concomitant]
     Indication: TRANSPLANT
  4. BORTEZOMIB [Concomitant]
     Indication: MULTIPLE MYELOMA
     Route: 065

REACTIONS (3)
  - CHRONIC GRAFT VERSUS HOST DISEASE [None]
  - DEATH [None]
  - ACUTE GRAFT VERSUS HOST DISEASE [None]
